FAERS Safety Report 10730668 (Version 1)
Quarter: 2015Q1

REPORT INFORMATION
  Report Type: Spontaneous
  Country: US (occurrence: US)
  Receive Date: 20150122
  Receipt Date: 20150122
  Transmission Date: 20150721
  Serious: Yes (Other)
  Sender: FDA-Public Use
  Company Number: US-PURDUE PHARMA-USA-2015-0120511

PATIENT
  Age: 52 Year
  Sex: Female

DRUGS (6)
  1. METHADONE [Suspect]
     Active Substance: METHADONE HYDROCHLORIDE
     Indication: BACK PAIN
  2. MORPHINE SULFATE (SIMILAR TO NDA 19-516) [Suspect]
     Active Substance: MORPHINE SULFATE
     Indication: BACK PAIN
  3. METHADONE [Suspect]
     Active Substance: METHADONE HYDROCHLORIDE
     Indication: NECK PAIN
     Dosage: 10 MG HALF TABLETS TWO TIMES DAILY FOR FIVE DAYS AND FULL TABLETS FOR FIVE DAYS
     Route: 065
     Dates: start: 20110818
  4. MORPHINE SULFATE (SIMILAR TO NDA 19-516) [Suspect]
     Active Substance: MORPHINE SULFATE
     Indication: NECK PAIN
     Dosage: 60 MG, BID
     Route: 048
     Dates: start: 20110818
  5. NORCO [Suspect]
     Active Substance: ACETAMINOPHEN\HYDROCODONE BITARTRATE
     Indication: BACK PAIN
  6. NORCO [Suspect]
     Active Substance: ACETAMINOPHEN\HYDROCODONE BITARTRATE
     Indication: NECK PAIN
     Dosage: 10/25 UPTO 4 TIMES DAILY
     Route: 065
     Dates: start: 20110818

REACTIONS (2)
  - Heart rate decreased [Unknown]
  - Nausea [Unknown]
